FAERS Safety Report 7633779-6 (Version None)
Quarter: 2011Q3

REPORT INFORMATION
  Report Type: 
  Country: None (occurrence: None)
  Receive Date: 20110725
  Receipt Date: 20110718
  Transmission Date: 20111222
  Serious: Yes (Death, Hospitalization)
  Sender: FDA-Public Use
  Company Number: DE-CELGENEUS-062-21880-11061190

PATIENT
  Age: 75 Year
  Sex: Female
  Weight: 62 kg

DRUGS (4)
  1. REVLIMID [Suspect]
     Dosage: 25 MILLIGRAM
     Route: 048
     Dates: start: 20100325, end: 20100415
  2. REVLIMID [Suspect]
     Dosage: 15 MILLIGRAM
     Route: 048
     Dates: end: 20101225
  3. REVLIMID [Suspect]
     Indication: MULTIPLE MYELOMA
     Dosage: 25 MILLIGRAM
     Route: 048
     Dates: start: 20100225, end: 20100317
  4. PREDNISONE [Concomitant]
     Route: 048
     Dates: start: 20101106, end: 20101203

REACTIONS (4)
  - PNEUMONIA [None]
  - MULTI-ORGAN FAILURE [None]
  - DEEP VEIN THROMBOSIS [None]
  - SEPTIC SHOCK [None]
